FAERS Safety Report 4533503-X (Version None)
Quarter: 2004Q4

REPORT INFORMATION
  Report Type: 
  Country: None (occurrence: None)
  Receive Date: 20041221
  Receipt Date: 20041210
  Transmission Date: 20050328
  Serious: Yes (Life-Threatening, Hospitalization)
  Sender: FDA-Public Use
  Company Number: DE-AMGEN-UK102861

PATIENT
  Sex: Male
  Weight: 64 kg

DRUGS (10)
  1. NEUPOGEN [Suspect]
     Indication: CHEMOTHERAPY
     Route: 058
     Dates: start: 20040711
  2. ARANESP [Concomitant]
     Route: 065
  3. PREDNISOLONE [Concomitant]
     Route: 065
  4. MOXONIDINE [Concomitant]
     Route: 065
  5. ZOCOR [Concomitant]
     Route: 065
  6. TOREM [Concomitant]
     Route: 065
  7. PANTOZOL [Concomitant]
     Route: 065
  8. FRAGMIN [Concomitant]
     Route: 058
  9. CALCITRIOL [Concomitant]
     Route: 065
  10. RAMIPRIL [Concomitant]
     Route: 065

REACTIONS (5)
  - ACUTE CORONARY SYNDROME [None]
  - CIRCULATORY COLLAPSE [None]
  - HAEMOGLOBIN DECREASED [None]
  - HYPERTENSIVE CRISIS [None]
  - SPLENIC RUPTURE [None]
